FAERS Safety Report 9473228 (Version 3)
Quarter: 2014Q3

REPORT INFORMATION
  Report Type: Spontaneous
  Country: US (occurrence: US)
  Receive Date: 20130823
  Receipt Date: 20140808
  Transmission Date: 20150326
  Serious: No
  Sender: FDA-Public Use
  Company Number: US-BRISTOL-MYERS SQUIBB COMPANY-18799072

PATIENT
  Age: 73 Year
  Sex: Female
  Weight: 58.96 kg

DRUGS (15)
  1. SYMBICORT [Concomitant]
     Active Substance: BUDESONIDE\FORMOTEROL FUMARATE DIHYDRATE
     Dosage: 150/4.5 BID 2 PUFFS 150/4.5
  2. PREDNISONE. [Concomitant]
     Active Substance: PREDNISONE
     Indication: PANCREATITIS
  3. RAMIPRIL. [Concomitant]
     Active Substance: RAMIPRIL
  4. LEVOTHYROXINE [Concomitant]
     Active Substance: LEVOTHYROXINE
  5. SPIRIVA [Concomitant]
     Active Substance: TIOTROPIUM BROMIDE MONOHYDRATE
  6. ASPIRIN. [Concomitant]
     Active Substance: ASPIRIN
  7. SPIRIVA [Concomitant]
     Active Substance: TIOTROPIUM BROMIDE MONOHYDRATE
  8. SPRYCEL [Suspect]
     Active Substance: DASATINIB
     Indication: CHRONIC MYELOID LEUKAEMIA
     Dosage: EXP DATE:NOV15?2L60548
     Route: 048
     Dates: start: 20130306
  9. VITAMIN D [Concomitant]
     Active Substance: CHOLECALCIFEROL
  10. PREDNISONE. [Concomitant]
     Active Substance: PREDNISONE
     Dosage: ANOTHER 7.5MG QD
  11. FISH OIL [Concomitant]
     Active Substance: FISH OIL
  12. SYMBICORT [Concomitant]
     Active Substance: BUDESONIDE\FORMOTEROL FUMARATE DIHYDRATE
     Dosage: INHALER
  13. CALCIUM [Concomitant]
     Active Substance: CALCIUM
  14. METFORMIN [Concomitant]
     Active Substance: METFORMIN HYDROCHLORIDE
  15. AMLODIPINE [Concomitant]
     Active Substance: AMLODIPINE BESYLATE

REACTIONS (9)
  - Nausea [Unknown]
  - Alopecia [Unknown]
  - Contusion [Unknown]
  - Thyroid function test abnormal [Unknown]
  - Upper respiratory tract infection [Unknown]
  - Hunger [Unknown]
  - Herpes zoster [Unknown]
  - Dysgeusia [Unknown]
  - Sleep disorder [Unknown]
